FAERS Safety Report 18547729 (Version 1)
Quarter: 2020Q4

REPORT INFORMATION
  Report Type: Report from Study
  Country: US (occurrence: US)
  Receive Date: 20201125
  Receipt Date: 20201125
  Transmission Date: 20210114
  Serious: Yes (Other)
  Sender: FDA-Public Use
  Company Number: US-BAYER-2020-253775

PATIENT

DRUGS (1)
  1. AFRIN [Suspect]
     Active Substance: OXYMETAZOLINE
     Indication: SINUSITIS

REACTIONS (2)
  - Drug dependence [Unknown]
  - Drug effective for unapproved indication [Unknown]
